FAERS Safety Report 16206217 (Version 1)
Quarter: 2019Q2

REPORT INFORMATION
  Report Type: Spontaneous
  Country: DK (occurrence: DK)
  Receive Date: 20190417
  Receipt Date: 20190417
  Transmission Date: 20190711
  Serious: Yes (Death, Life-Threatening, Other)
  Sender: FDA-Public Use
  Company Number: DK-BRISTOL-MYERS SQUIBB COMPANY-BMS-2019-036638

PATIENT
  Age: 77 Year
  Sex: Female

DRUGS (3)
  1. PANTOLOC                           /01263201/ [Concomitant]
     Active Substance: PANTOPRAZOLE SODIUM
     Indication: GASTROOESOPHAGEAL REFLUX DISEASE
     Dosage: 40 MILLIGRAM, 1 DAY
     Route: 048
     Dates: start: 20160901
  2. ELIQUIS [Suspect]
     Active Substance: APIXABAN
     Indication: THROMBOSIS PROPHYLAXIS
     Dosage: 10 MILLIGRAM, 1 DAY
     Route: 048
     Dates: start: 20190306, end: 20190331
  3. DERMOVAT                           /00008503/ [Concomitant]
     Indication: ECZEMA
     Dosage: 2 DOSAGE FORM, 1 DAY ( 0.5 MG/G)
     Route: 003

REACTIONS (4)
  - Subarachnoid haemorrhage [Fatal]
  - Loss of consciousness [Not Recovered/Not Resolved]
  - Cerebral haemorrhage [Fatal]
  - Intraventricular haemorrhage [Fatal]

NARRATIVE: CASE EVENT DATE: 20190331
